FAERS Safety Report 11243479 (Version 1)
Quarter: 2015Q3

REPORT INFORMATION
  Report Type: Spontaneous
  Country: US (occurrence: US)
  Receive Date: 20150707
  Receipt Date: 20150707
  Transmission Date: 20151125
  Serious: No
  Sender: FDA-Public Use
  Company Number: US-DSJP-DSU-2014-121826

PATIENT
  Age: 60 Year
  Sex: Female
  Weight: 62.13 kg

DRUGS (1)
  1. WELCHOL [Suspect]
     Active Substance: COLESEVELAM HYDROCHLORIDE
     Indication: HYPERCHOLESTEROLAEMIA
     Dosage: 1875 MG, BID
     Route: 048
     Dates: start: 201312, end: 201403

REACTIONS (3)
  - Laboratory test abnormal [Recovering/Resolving]
  - Bronchitis [Recovering/Resolving]
  - Lung disorder [Recovering/Resolving]

NARRATIVE: CASE EVENT DATE: 201312
